FAERS Safety Report 24868282 (Version 4)
Quarter: 2025Q2

REPORT INFORMATION
  Report Type: Spontaneous
  Country: JP (occurrence: JP)
  Receive Date: 20250121
  Receipt Date: 20250404
  Transmission Date: 20250716
  Serious: Yes (Death, Other)
  Sender: ALEXION PHARMACEUTICALS
  Company Number: JP-AstraZeneca-CH-00786431A

PATIENT
  Age: 76 Year

DRUGS (1)
  1. ULTOMIRIS [Suspect]
     Active Substance: RAVULIZUMAB-CWVZ
     Indication: Myasthenia gravis
     Dosage: 3000 MILLIGRAM, Q2W

REACTIONS (6)
  - Myasthenia gravis [Fatal]
  - Drug ineffective [Fatal]
  - Muscle atrophy [Fatal]
  - Gallbladder enlargement [Unknown]
  - Ascites [Unknown]
  - Pleural effusion [Unknown]
